FAERS Safety Report 21708260 (Version 2)
Quarter: 2022Q4

REPORT INFORMATION
  Report Type: Spontaneous
  Country: CA (occurrence: CA)
  Receive Date: 20221210
  Receipt Date: 20221213
  Transmission Date: 20230113
  Serious: Yes (Other)
  Sender: FDA-Public Use
  Company Number: CA-CELLTRION INC.-2022CA015439

PATIENT

DRUGS (2)
  1. INFLIXIMAB [Suspect]
     Active Substance: INFLIXIMAB
     Indication: Rheumatoid arthritis
     Dosage: 120 MG/ML SC Q2WEEKS
     Route: 058
     Dates: start: 20220629
  2. INFLIXIMAB [Suspect]
     Active Substance: INFLIXIMAB
     Dosage: MOST RECENT INJECTION DATE
     Route: 058
     Dates: start: 20221130

REACTIONS (7)
  - Haemorrhage [Recovered/Resolved]
  - Dry mouth [Recovering/Resolving]
  - Corneal irritation [Recovering/Resolving]
  - Rash [Recovering/Resolving]
  - Contusion [Recovered/Resolved]
  - Exposure via skin contact [Unknown]
  - Incorrect dose administered [Unknown]

NARRATIVE: CASE EVENT DATE: 20221130
